FAERS Safety Report 18115362 (Version 1)
Quarter: 2020Q3

REPORT INFORMATION
  Report Type: Report from Study
  Country: IT (occurrence: IT)
  Receive Date: 20200805
  Receipt Date: 20200805
  Transmission Date: 20201103
  Serious: Yes (Life-Threatening)
  Sender: FDA-Public Use
  Company Number: IT-TEVA-2020-IT-1808928

PATIENT
  Age: 65 Year
  Sex: Female

DRUGS (12)
  1. VALDORM 30 MG CAPSULE [Concomitant]
     Active Substance: FLURAZEPAM HYDROCHLORIDE
     Dosage: 1 DOSAGE FORMS
  2. DENIBAN 50 MG COMPRESSE [Concomitant]
     Dosage: 0.5 DOSAGE FORMS
  3. CARBOLITHIUM 300 MG CAPSULE RIGIDE [Concomitant]
     Active Substance: LITHIUM CARBONATE
     Dosage: 3 DOSAGE FORMS
  4. MOVICOL [Concomitant]
     Active Substance: POLYETHYLENE GLYCOL 3350\POTASSIUM CHLORIDE\SODIUM BICARBONATE\SODIUM CHLORIDE
     Dosage: 1 DOSAGE FORMS
  5. CARDURA [Concomitant]
     Active Substance: DOXAZOSIN MESYLATE
     Dosage: 1 DOSAGE FORMS
  6. TRIAZOLAM. [Suspect]
     Active Substance: TRIAZOLAM
     Indication: SUICIDE ATTEMPT
     Dosage: 12.5 MG, ADDITIONAL DRUG INFORMATION:  ABUSE / MISUSE
     Route: 048
     Dates: start: 20200505, end: 20200505
  7. SERTRALINE [Concomitant]
     Active Substance: SERTRALINE HYDROCHLORIDE
     Dosage: 100 MG
  8. QUETIAPINE FUMARATE. [Suspect]
     Active Substance: QUETIAPINE FUMARATE
     Indication: SUICIDE ATTEMPT
     Dosage: 18 GM,ADDITIONAL DRUG INFORMATION:  ABUSE / MISUSE
     Route: 048
     Dates: start: 20200505, end: 20200505
  9. MIRTAZAPINE. [Concomitant]
     Active Substance: MIRTAZAPINE
     Dosage: 30 MG
  10. TRITTICO 150 MG COMPRESSE A RILASCIO PROLUNGATO [Concomitant]
     Active Substance: TRAZODONE HYDROCHLORIDE
     Dosage: 2 DOSAGE FORMS
  11. GABAPENTIN. [Concomitant]
     Active Substance: GABAPENTIN
     Dosage: 300 MG
  12. DELORAZEPAM [Concomitant]
     Active Substance: DELORAZEPAM
     Dosage: 20 GTT

REACTIONS (2)
  - Drug abuse [Unknown]
  - Coma [Unknown]

NARRATIVE: CASE EVENT DATE: 20200505
